FAERS Safety Report 6806944-5 (Version None)
Quarter: 2010Q2

REPORT INFORMATION
  Report Type: 
  Country: None (occurrence: None)
  Receive Date: 20100629
  Receipt Date: 20080730
  Transmission Date: 20101027
  Serious: No
  Sender: FDA-Public Use
  Company Number: US-PFIZER INC-2008052969

PATIENT
  Sex: Male
  Weight: 95.454 kg

DRUGS (4)
  1. VIAGRA [Suspect]
     Indication: ERECTILE DYSFUNCTION
     Dates: start: 20080401
  2. TESTOSTERONE [Interacting]
     Indication: BLOOD TESTOSTERONE DECREASED
     Dates: start: 20080401
  3. COZAAR [Concomitant]
     Indication: BLOOD PRESSURE ABNORMAL
  4. VALIUM [Concomitant]

REACTIONS (3)
  - BLOOD TESTOSTERONE DECREASED [None]
  - DRUG INEFFECTIVE [None]
  - DRUG INTERACTION [None]
